FAERS Safety Report 9176081 (Version 1)
Quarter: 2013Q1

REPORT INFORMATION
  Report Type: Spontaneous
  Country: US (occurrence: US)
  Receive Date: 20130319
  Receipt Date: 20130319
  Transmission Date: 20140127
  Serious: Yes (Other)
  Sender: FDA-Public Use
  Company Number: US-BRACCO-009259

PATIENT
  Age: 81 Year
  Sex: Female

DRUGS (1)
  1. CHOLETEC [Suspect]
     Indication: HEPATOBILIARY SCAN

REACTIONS (1)
  - Pseudolymphoma [Recovered/Resolved]
